FAERS Safety Report 21919868 (Version 1)
Quarter: 2023Q1

REPORT INFORMATION
  Report Type: Spontaneous
  Country: FR (occurrence: None)
  Receive Date: 20230127
  Receipt Date: 20230127
  Transmission Date: 20230417
  Serious: Yes (Life-Threatening, Hospitalization)
  Sender: FDA-Public Use
  Company Number: 2023A021856

PATIENT
  Age: 71 Year
  Sex: Female

DRUGS (3)
  1. QUETIAPINE [Suspect]
     Active Substance: QUETIAPINE
     Dosage: 40 TABLETS40.0DF UNKNOWN
     Route: 048
     Dates: start: 20221226
  2. DIAZEPAM [Suspect]
     Active Substance: DIAZEPAM
     Dosage: 30 TABLETS OF 10 MG300.0MG UNKNOWN
     Route: 048
     Dates: start: 20221226
  3. VENLAFAXINE [Suspect]
     Active Substance: VENLAFAXINE HYDROCHLORIDE
     Dosage: 30 CP OF 75 MG2250.0MG UNKNOWN
     Route: 048
     Dates: start: 20230111

REACTIONS (2)
  - Poisoning deliberate [Recovered/Resolved]
  - Coma [Recovered/Resolved]

NARRATIVE: CASE EVENT DATE: 20221226
